FAERS Safety Report 6188279-X (Version None)
Quarter: 2009Q2

REPORT INFORMATION
  Report Type: 
  Country: None (occurrence: None)
  Receive Date: 20090513
  Receipt Date: 20090507
  Transmission Date: 20091009
  Serious: Yes (Other)
  Sender: FDA-Public Use
  Company Number: GB-PFIZER INC-2009202405

PATIENT
  Age: 63 Year

DRUGS (1)
  1. CHAMPIX [Suspect]
     Dosage: UNK
     Route: 048
     Dates: start: 20080516, end: 20080520

REACTIONS (6)
  - HALLUCINATION [None]
  - INSOMNIA [None]
  - MALAISE [None]
  - NIGHT SWEATS [None]
  - OEDEMA PERIPHERAL [None]
  - TREMOR [None]
